FAERS Safety Report 10258075 (Version 1)
Quarter: 2014Q2

REPORT INFORMATION
  Report Type: Spontaneous
  Country: FR (occurrence: FR)
  Receive Date: 20140625
  Receipt Date: 20140625
  Transmission Date: 20141212
  Serious: Yes (Hospitalization)
  Sender: FDA-Public Use
  Company Number: FR-MERCK-1406FRA010868

PATIENT
  Age: 64 Year
  Sex: Male

DRUGS (5)
  1. CHIBRO-PROSCAR [Suspect]
     Dosage: 1 DF, QD
     Route: 048
     Dates: start: 20140410, end: 20140426
  2. AUGMENTIN [Suspect]
     Dosage: 1 G, BID
     Route: 048
     Dates: start: 20140414, end: 20140421
  3. BACTRIM FORTE [Suspect]
     Dosage: 1 DF, BID
     Route: 048
     Dates: start: 20140410, end: 20140414
  4. OFLOCET (OFLOXACIN) [Suspect]
     Dosage: UNK
     Route: 048
     Dates: start: 20140405, end: 20140410
  5. OFLOCET (OFLOXACIN) [Suspect]
     Dosage: UNK
     Route: 048
     Dates: start: 20140422

REACTIONS (3)
  - Hepatocellular injury [Recovered/Resolved]
  - Jaundice cholestatic [Not Recovered/Not Resolved]
  - Pruritus generalised [Not Recovered/Not Resolved]
